FAERS Safety Report 7599980-5 (Version None)
Quarter: 2011Q3

REPORT INFORMATION
  Report Type: 
  Country: None (occurrence: None)
  Receive Date: 20110711
  Receipt Date: 20110706
  Transmission Date: 20111222
  Serious: No
  Sender: FDA-Public Use
  Company Number: US-PFIZER INC-2011152922

PATIENT
  Sex: Male

DRUGS (1)
  1. ADVIL LIQUI-GELS [Suspect]
     Indication: PYREXIA
     Dosage: 3 TEASPOONS AT 2115, V ON 06JUL2011
     Dates: start: 20110705, end: 20110706

REACTIONS (1)
  - LIP SWELLING [None]
